FAERS Safety Report 10450446 (Version 1)
Quarter: 2014Q3

REPORT INFORMATION
  Report Type: Spontaneous
  Country: US (occurrence: None)
  Receive Date: 20140911
  Receipt Date: 20140911
  Transmission Date: 20150326
  Serious: No
  Sender: FDA-Public Use
  Company Number: None

PATIENT
  Age: 57 Year
  Sex: Male
  Weight: 91.5 kg

DRUGS (1)
  1. SALSALATE. [Suspect]
     Active Substance: SALSALATE
     Indication: PAIN
     Route: 048
     Dates: start: 20140830, end: 20140902

REACTIONS (3)
  - Convulsion [None]
  - Anxiety [None]
  - Tachycardia [None]

NARRATIVE: CASE EVENT DATE: 20140909
